FAERS Safety Report 6359599-0 (Version None)
Quarter: 2009Q3

REPORT INFORMATION
  Report Type: 
  Country: None (occurrence: None)
  Receive Date: 20090917
  Receipt Date: 20090908
  Transmission Date: 20100115
  Serious: Yes (Death)
  Sender: FDA-Public Use
  Company Number: NL-GENENTECH-290368

PATIENT

DRUGS (4)
  1. BEVACIZUMAB [Suspect]
     Indication: COLORECTAL CANCER
     Route: 042
  2. CAPECITABINE [Suspect]
     Indication: COLORECTAL CANCER
     Route: 048
  3. CETUXIMAB [Suspect]
     Indication: COLORECTAL CANCER
     Route: 042
  4. OXALIPLATIN [Suspect]
     Indication: COLORECTAL CANCER
     Route: 042

REACTIONS (1)
  - CHEST PAIN [None]
